FAERS Safety Report 16996181 (Version 2)
Quarter: 2020Q3

REPORT INFORMATION
  Report Type: Report from Study
  Country: US (occurrence: US)
  Receive Date: 20191105
  Receipt Date: 20200903
  Transmission Date: 20201102
  Serious: No
  Sender: FDA-Public Use
  Company Number: PHHY2017US120626

PATIENT
  Age: 27 Year
  Sex: Female

DRUGS (1)
  1. GILENYA [Suspect]
     Active Substance: FINGOLIMOD HYDROCHLORIDE
     Indication: MULTIPLE SCLEROSIS
     Dosage: UNK, QD
     Route: 048

REACTIONS (8)
  - Myalgia [Unknown]
  - Headache [Unknown]
  - Back pain [Unknown]
  - Dyspnoea [Unknown]
  - Depression [Unknown]
  - Paresis [Unknown]
  - Anxiety [Unknown]
  - Arthralgia [Unknown]

NARRATIVE: CASE EVENT DATE: 20170920
